FAERS Safety Report 4800433-5 (Version None)
Quarter: 2005Q4

REPORT INFORMATION
  Report Type: 
  Country: None (occurrence: None)
  Receive Date: 20051013
  Receipt Date: 20050930
  Transmission Date: 20060501
  Serious: Yes (Congenital Anomaly)
  Sender: FDA-Public Use
  Company Number: 2005136930

PATIENT

DRUGS (1)
  1. NICORETTE [Suspect]
     Indication: DRUG EXPOSURE DURING PREGNANCY
     Dosage: PLACENTAL
     Route: 064
     Dates: start: 20050701, end: 20050901

REACTIONS (3)
  - DRUG EXPOSURE DURING PREGNANCY [None]
  - FOETAL CHROMOSOME ABNORMALITY [None]
  - WEIGHT BELOW NORMAL [None]
